FAERS Safety Report 8210883-5 (Version None)
Quarter: 2012Q1

REPORT INFORMATION
  Report Type: 
  Country: None (occurrence: None)
  Receive Date: 20120315
  Receipt Date: 20120307
  Transmission Date: 20120608
  Serious: Yes (Hospitalization, Other)
  Sender: FDA-Public Use
  Company Number: US-BAYER-2011-099762

PATIENT
  Age: 30 Year
  Sex: Female
  Weight: 63.492 kg

DRUGS (7)
  1. PRILOSEC [Concomitant]
     Dosage: 20 MG, QD
     Route: 048
     Dates: start: 20080306, end: 20090312
  2. MULTI-VITAMINS [Concomitant]
     Dosage: 1 DF, QD
     Route: 048
     Dates: start: 20090312
  3. DROSPIRENONE AND ETHINYL ESTRADIOL [Suspect]
     Indication: CONTRACEPTION
     Dosage: UNK
     Route: 048
     Dates: start: 20051201, end: 20101017
  4. YASMIN [Suspect]
     Indication: CONTRACEPTION
     Dosage: UNK
     Route: 048
     Dates: start: 20051201, end: 20101017
  5. ALLEGRA [Concomitant]
     Dosage: 180 MG, PRN
     Route: 048
     Dates: start: 20080406, end: 20100322
  6. FISH OIL [Concomitant]
     Dosage: 1 DF, QD
     Route: 048
     Dates: start: 20090310
  7. CALCIUM [Concomitant]
     Dosage: DAILY DOSE 500 MG
     Route: 048
     Dates: start: 20090312

REACTIONS (4)
  - BACK PAIN [None]
  - ABDOMINAL PAIN [None]
  - CHOLECYSTITIS ACUTE [None]
  - INJURY [None]
